FAERS Safety Report 7282287-3 (Version None)
Quarter: 2011Q1

REPORT INFORMATION
  Report Type: 
  Country: None (occurrence: None)
  Receive Date: 20110209
  Receipt Date: 20110207
  Transmission Date: 20110831
  Serious: Yes (Death)
  Sender: FDA-Public Use
  Company Number: BG-TEVA-XM22-04-264481GER

PATIENT
  Sex: Male
  Weight: 56 kg

DRUGS (9)
  1. XM22 PEG-FILGRASTIM [Suspect]
     Dosage: BLINDED XM22 6 MG OR PLACEBO
     Route: 058
     Dates: start: 20101224, end: 20101224
  2. CISPLATIN [Suspect]
     Route: 041
     Dates: start: 20110111, end: 20110111
  3. XM22 PEG-FILGRASTIM [Suspect]
     Indication: COLONY STIMULATING FACTOR PROPHYLAXIS
     Dosage: BLINDED XM22 6 MG OR PLACEBO
     Route: 058
     Dates: start: 20101203, end: 20101203
  4. ETOPOSIDE [Suspect]
     Route: 041
     Dates: start: 20101221, end: 20101223
  5. XM22 PEG-FILGRASTIM [Suspect]
     Dosage: BLINDED XM22 6 MG OR PLACEBO
     Route: 058
     Dates: start: 20110114, end: 20110114
  6. ETOPOSIDE [Suspect]
     Route: 041
     Dates: start: 20110111, end: 20110113
  7. CISPLATIN [Suspect]
     Indication: NON-SMALL CELL LUNG CANCER
     Route: 041
     Dates: start: 20101130, end: 20101130
  8. CISPLATIN [Suspect]
     Route: 041
     Dates: start: 20101221, end: 20101221
  9. ETOPOSIDE [Suspect]
     Indication: NON-SMALL CELL LUNG CANCER
     Route: 041
     Dates: start: 20101130, end: 20101202

REACTIONS (1)
  - RENAL FAILURE [None]
